FAERS Safety Report 7125116 (Version 2)
Quarter: 2018Q4

REPORT INFORMATION
  Report Type: Spontaneous
  Country: JP (occurrence: JP)
  Receive Date: 20090922
  Receipt Date: 20181214
  Transmission Date: 20190205
  Serious: Yes (Other)
  Sender: FDA-Public Use
  Company Number: PHHY2009JP38839

PATIENT
  Sex: Male

DRUGS (1)
  1. RITALIN [Suspect]
     Active Substance: METHYLPHENIDATE HYDROCHLORIDE
     Indication: PRODUCT USED FOR UNKNOWN INDICATION
     Dosage: UNK
     Route: 048

REACTIONS (7)
  - Affect lability [Unknown]
  - Drug dependence [Unknown]
  - Road traffic accident [Unknown]
  - Aggression [Unknown]
  - Loss of personal independence in daily activities [Unknown]
  - Intentional product misuse [Unknown]
  - Abnormal behaviour [Unknown]
